FAERS Safety Report 8852913 (Version 1)
Quarter: 2012Q4

REPORT INFORMATION
  Report Type: 
  Country: AU (occurrence: AU)
  Receive Date: 20121022
  Receipt Date: 20121022
  Transmission Date: 20130627
  Serious: Yes (Other)
  Sender: FDA-Public Use
  Company Number: PHHY2012AU092943

PATIENT
  Sex: Female

DRUGS (12)
  1. CICLOSPORIN [Suspect]
  2. EZETIMIBE [Suspect]
  3. CLEXANE [Concomitant]
  4. AMITRIPTYLINE HYDROCHLORIDE [Concomitant]
  5. ATENOLOL [Concomitant]
  6. BETAMETHASONE DIPROPIONATE [Concomitant]
  7. BETAMETHASONE VALERATE [Concomitant]
  8. CLOPIDOGREL [Concomitant]
  9. LERCANIDIPINE HYDROCHLORIDE [Concomitant]
  10. PERINDOPRIL [Concomitant]
  11. PANADOL [Concomitant]
  12. VITAMIN D NOS [Concomitant]

REACTIONS (2)
  - Myositis [Unknown]
  - Blood creatine phosphokinase increased [Unknown]
